FAERS Safety Report 8873172 (Version 1)
Quarter: 2012Q4

REPORT INFORMATION
  Report Type: 
  Country: US (occurrence: US)
  Receive Date: 20121026
  Receipt Date: 20121026
  Transmission Date: 20130627
  Serious: No
  Sender: FDA-Public Use
  Company Number: US-AMGEN-USASP2012050754

PATIENT
  Age: 42 Year
  Sex: Male
  Weight: 99.77 kg

DRUGS (7)
  1. ENBREL [Suspect]
     Indication: PRODUCT USED FOR UNKNOWN INDICATION
     Dosage: 50 mg, qwk
     Route: 058
  2. PLAQUENIL                          /00072602/ [Concomitant]
     Dosage: 200 mg, UNK
  3. PRILOSEC                           /00661201/ [Concomitant]
     Dosage: 10 mg, UNK
  4. XANAX [Concomitant]
     Dosage: 1 mg, UNK
  5. BENADRYL ALLERGY                   /00000402/ [Concomitant]
     Dosage: 25 mg, UNK
  6. MELOXICAM [Concomitant]
     Dosage: 15 mg, UNK
  7. FOLIC ACID [Concomitant]
     Dosage: 1 mg, UNK

REACTIONS (5)
  - Injection site reaction [Unknown]
  - Injection site pain [Recovered/Resolved]
  - Injection site erythema [Unknown]
  - Injection site swelling [Unknown]
  - Injection site warmth [Unknown]
